FAERS Safety Report 9681629 (Version 2)
Quarter: 2013Q4

REPORT INFORMATION
  Report Type: Report from Study
  Country: JP (occurrence: JP)
  Receive Date: 20131111
  Receipt Date: 20131111
  Transmission Date: 20140711
  Serious: Yes (Hospitalization, Other)
  Sender: FDA-Public Use
  Company Number: JP-SA-THYM-1002497

PATIENT
  Age: 46 Year
  Sex: Female
  Weight: 63 kg

DRUGS (5)
  1. THYMOGLOBULINE [Suspect]
     Indication: APLASTIC ANAEMIA
     Dosage: 225 MG, QD
     Route: 042
     Dates: start: 20110420, end: 20110424
  2. CICLOSPORIN [Concomitant]
     Indication: APLASTIC ANAEMIA
     Dosage: 150 MG, BID
     Dates: start: 20110420, end: 20110531
  3. PREDNISOLONE [Concomitant]
     Indication: APLASTIC ANAEMIA
     Dosage: 60 MG, QD
     Dates: start: 20110425, end: 20110526
  4. FILGRASTIM [Concomitant]
     Indication: INFECTION PROPHYLAXIS
     Dosage: 300 MCG, QD
     Dates: start: 20110422, end: 20110502
  5. SULFAMETHOPRIM [Concomitant]
     Indication: INFECTION PROPHYLAXIS
     Dosage: 4 DF, BID
     Dates: start: 20110421

REACTIONS (5)
  - Cytomegalovirus gastritis [Recovered/Resolved]
  - Epstein-Barr viraemia [Recovered/Resolved]
  - Herpes simplex [Recovered/Resolved]
  - Post transplant lymphoproliferative disorder [Unknown]
  - Therapeutic response decreased [Unknown]
